FAERS Safety Report 12235910 (Version 3)
Quarter: 2016Q2

REPORT INFORMATION
  Report Type: Report from Study
  Country: US (occurrence: US)
  Receive Date: 20160404
  Receipt Date: 20160505
  Transmission Date: 20160815
  Serious: Yes (Hospitalization, Other)
  Sender: FDA-Public Use
  Company Number: US-ACTELION-A-NJ2016-133797

PATIENT
  Age: 76 Year
  Sex: Male

DRUGS (1)
  1. MACITENTAN [Suspect]
     Active Substance: MACITENTAN
     Indication: PULMONARY ARTERIAL HYPERTENSION
     Dosage: 10 MG, QD
     Route: 048
     Dates: start: 20160114

REACTIONS (13)
  - Haemorrhage [Unknown]
  - Transfusion [Unknown]
  - Peripheral swelling [Unknown]
  - Dyspnoea exertional [Unknown]
  - Exercise tolerance decreased [Unknown]
  - Pruritus [Unknown]
  - Hypotension [Unknown]
  - Pleural effusion [Unknown]
  - Dyspnoea [Unknown]
  - Asthenia [Unknown]
  - Blood calcium decreased [Unknown]
  - Erythema [Unknown]
  - No therapeutic response [Unknown]
